FAERS Safety Report 4320276-9 (Version None)
Quarter: 2004Q1

REPORT INFORMATION
  Report Type: 
  Country: None (occurrence: None)
  Receive Date: 20040317
  Receipt Date: 20040302
  Transmission Date: 20041129
  Serious: No
  Sender: FDA-Public Use
  Company Number: 2004AP01373

PATIENT
  Age: 58 Year
  Sex: Male

DRUGS (7)
  1. IRESSA [Suspect]
     Indication: ADENOCARCINOMA
     Dosage: 250 MG DAILY PO
     Route: 048
     Dates: start: 20030603, end: 20030802
  2. IRESSA [Suspect]
     Indication: NON-SMALL CELL LUNG CANCER
     Dosage: 250 MG DAILY PO
     Route: 048
     Dates: start: 20030603, end: 20030802
  3. GLYCEOL [Concomitant]
  4. DECADRON [Concomitant]
  5. DUROTEP JANSSEN [Concomitant]
  6. HALOPERIDOL [Concomitant]
  7. RADIATION THERAPY [Concomitant]

REACTIONS (6)
  - BLOOD ALKALINE PHOSPHATASE INCREASED [None]
  - GENERAL PHYSICAL HEALTH DETERIORATION [None]
  - INTERSTITIAL LUNG DISEASE [None]
  - LYMPHANGIOSIS CARCINOMATOSA [None]
  - METASTASES TO BONE [None]
  - PLEURAL EFFUSION [None]
